FAERS Safety Report 13426730 (Version 1)
Quarter: 2017Q2

REPORT INFORMATION
  Report Type: Spontaneous
  Country: US (occurrence: US)
  Receive Date: 20170411
  Receipt Date: 20170411
  Transmission Date: 20170830
  Serious: No
  Sender: FDA-Public Use
  Company Number: US-BAYER-2017-067041

PATIENT
  Sex: Female

DRUGS (1)
  1. MIRALAX [Suspect]
     Active Substance: POLYETHYLENE GLYCOL 3350
     Indication: COLONOSCOPY
     Dosage: 238G OF MIRALAX MIXED WITH 64 OUNCES OF GATORADE
     Route: 065
     Dates: start: 201704

REACTIONS (2)
  - Off label use [Unknown]
  - Product use in unapproved indication [Unknown]
